FAERS Safety Report 23486541 (Version 2)
Quarter: 2024Q1

REPORT INFORMATION
  Report Type: Spontaneous
  Country: US (occurrence: US)
  Receive Date: 20240206
  Receipt Date: 20240222
  Transmission Date: 20240410
  Serious: Yes (Hospitalization, Other)
  Sender: FDA-Public Use
  Company Number: US-AstraZeneca-2024A024891

PATIENT
  Age: 62 Year
  Sex: Male
  Weight: 93.8 kg

DRUGS (12)
  1. BUDESONIDE [Suspect]
     Active Substance: BUDESONIDE
     Dosage: RESPIRATORY (INHALATION)
     Route: 055
  2. METOPROLOL TARTRATE [Suspect]
     Active Substance: METOPROLOL TARTRATE
  3. ESOMEPRAZOLE [Suspect]
     Active Substance: ESOMEPRAZOLE
  4. PREDNISONE [Suspect]
     Active Substance: PREDNISONE
     Indication: Product used for unknown indication
     Dates: start: 20220805
  5. XOSPATA [Suspect]
     Active Substance: GILTERITINIB
     Indication: Acute myeloid leukaemia
     Dosage: DAILY DOSE: 120 MILLIGRAM
     Route: 048
     Dates: start: 20220601, end: 20220801
  6. XOSPATA [Suspect]
     Active Substance: GILTERITINIB
     Indication: Acute myeloid leukaemia
     Dosage: DAILY DOSE: 120 MILLIGRAM
     Route: 048
     Dates: start: 20220817
  7. VITAMIN D3 [Concomitant]
     Active Substance: CHOLECALCIFEROL
  8. PROGRAF [Concomitant]
     Active Substance: TACROLIMUS
  9. ELIQUIS [Concomitant]
     Active Substance: APIXABAN
  10. ZOVIRAX [Concomitant]
     Active Substance: ACYCLOVIR
  11. ZYLOPRIM [Concomitant]
     Active Substance: ALLOPURINOL
  12. NORVASC [Concomitant]
     Active Substance: AMLODIPINE BESYLATE

REACTIONS (51)
  - Type 2 diabetes mellitus [Unknown]
  - Chronic graft versus host disease in lung [Unknown]
  - Graft versus host disease in gastrointestinal tract [Unknown]
  - Pyrexia [Unknown]
  - Skin infection [Unknown]
  - Scratch [Unknown]
  - Rash [Recovered/Resolved]
  - Graft versus host disease in skin [Unknown]
  - Impaired healing [Unknown]
  - Gastrointestinal disorder [Unknown]
  - Diarrhoea [Unknown]
  - Condition aggravated [Unknown]
  - Rash pruritic [Recovered/Resolved]
  - Purpura [Unknown]
  - Decreased appetite [Unknown]
  - Abdominal discomfort [Unknown]
  - Oedema peripheral [Unknown]
  - Blood alkaline phosphatase increased [Unknown]
  - Blood creatinine increased [Unknown]
  - Laboratory test abnormal [Unknown]
  - Cough [Unknown]
  - Globulin abnormal [Unknown]
  - Blood alkaline phosphatase abnormal [Unknown]
  - Blood creatinine abnormal [Unknown]
  - Blood glucose abnormal [Unknown]
  - Blood urea abnormal [Unknown]
  - Glomerular filtration rate abnormal [Unknown]
  - Lymphocyte percentage abnormal [Unknown]
  - Mean cell haemoglobin concentration abnormal [Unknown]
  - Mean cell haemoglobin concentration [Unknown]
  - Alanine aminotransferase abnormal [Unknown]
  - Aspartate aminotransferase abnormal [Unknown]
  - Blood immunoglobulin G abnormal [Unknown]
  - Blood immunoglobulin M abnormal [Unknown]
  - Carbon dioxide abnormal [Unknown]
  - Haematocrit abnormal [Unknown]
  - Immunosuppressant drug level abnormal [Unknown]
  - Haemoglobin abnormal [Unknown]
  - Mean cell volume abnormal [Unknown]
  - Metamyelocyte count [Unknown]
  - Metamyelocyte percentage [Unknown]
  - Monocyte count abnormal [Unknown]
  - Monocyte percentage abnormal [Unknown]
  - Neutrophil count abnormal [Unknown]
  - Neutrophil percentage abnormal [Unknown]
  - Platelet count abnormal [Unknown]
  - Promyelocyte count [Unknown]
  - Red cell distribution width abnormal [Unknown]
  - White blood cell count abnormal [Unknown]
  - Platelet count decreased [Unknown]
  - Basophil percentage decreased [Unknown]

NARRATIVE: CASE EVENT DATE: 20220301
